FAERS Safety Report 14407142 (Version 1)
Quarter: 2018Q1

REPORT INFORMATION
  Report Type: Spontaneous
  Country: US (occurrence: US)
  Receive Date: 20180118
  Receipt Date: 20180118
  Transmission Date: 20180509
  Serious: Yes (Other)
  Sender: FDA-Public Use
  Company Number: US-ENDO PHARMACEUTICALS INC-2018-014290

PATIENT
  Sex: Female

DRUGS (1)
  1. HYDROCORTISONE TABLETS [Suspect]
     Active Substance: HYDROCORTISONE
     Indication: SECONDARY ADRENOCORTICAL INSUFFICIENCY
     Dosage: UNK UNKNOWN, UNKNOWN
     Route: 065
     Dates: start: 201312, end: 201312

REACTIONS (12)
  - Crying [Unknown]
  - Diarrhoea [Unknown]
  - Anxiety [Unknown]
  - Feeling abnormal [Unknown]
  - Apparent death [Unknown]
  - Balance disorder [Unknown]
  - Product quality issue [Unknown]
  - Suicidal ideation [Unknown]
  - Mood swings [Unknown]
  - Memory impairment [Unknown]
  - Asthenia [Unknown]
  - Visual impairment [Unknown]

NARRATIVE: CASE EVENT DATE: 201312
